FAERS Safety Report 24167056 (Version 1)
Quarter: 2024Q3

REPORT INFORMATION
  Report Type: Spontaneous
  Country: HU (occurrence: HU)
  Receive Date: 20240802
  Receipt Date: 20240802
  Transmission Date: 20241017
  Serious: Yes (Other)
  Sender: OXFORD PHARMACEUTICALS
  Company Number: HU-Oxford Pharmaceuticals, LLC-2159922

PATIENT
  Age: 4 Year
  Sex: Female

DRUGS (4)
  1. LEVETIRACETAM [Suspect]
     Active Substance: LEVETIRACETAM
     Indication: Epilepsy
  2. LAMOTRIGINE [Suspect]
     Active Substance: LAMOTRIGINE
  3. CLOBAZAM [Suspect]
     Active Substance: CLOBAZAM
  4. VALPROIC ACID [Suspect]
     Active Substance: VALPROIC ACID

REACTIONS (1)
  - Drug ineffective [Unknown]
